FAERS Safety Report 4583548-9 (Version None)
Quarter: 2005Q1

REPORT INFORMATION
  Report Type: 
  Country: None (occurrence: None)
  Receive Date: 20050211
  Receipt Date: 20050131
  Transmission Date: 20050727
  Serious: Yes (Death, Hospitalization, Other)
  Sender: FDA-Public Use
  Company Number: 2005RL000003

PATIENT
  Age: 63 Year
  Sex: Male

DRUGS (17)
  1. PROPAFENONE HCL [Suspect]
     Indication: ARRHYTHMIA
     Dosage: 300 MG, TID, PO
     Route: 048
     Dates: start: 20041028, end: 20041101
  2. PROPAFENONE HCL [Suspect]
     Indication: ARRHYTHMIA
     Dosage: 300 MG, TID, PO
     Route: 048
     Dates: start: 20041001
  3. METOPROLOL TARTRATE [Suspect]
     Indication: ARRHYTHMIA
     Dosage: 50 MG; QD; PO
     Route: 048
     Dates: start: 20041021, end: 20041101
  4. ACETYLSALICYLIC ACID [Concomitant]
  5. ORFARIN [Concomitant]
  6. RAMIPRIL [Concomitant]
  7. GLUCOPHAGE [Concomitant]
  8. DIAZEPAM [Concomitant]
  9. BETAXOLOL HYDROCHLORIDE [Concomitant]
  10. OCUVITE [Concomitant]
  11. BETALOC ZOK ^ASTRA^ [Concomitant]
  12. RANITIDINE [Concomitant]
  13. DEXAMETHASONE [Concomitant]
  14. AMOXICILLIN AND CLAVULANATE POTASSIUM [Concomitant]
  15. PIRACETAM [Concomitant]
  16. ETOFYLLINE [Concomitant]
  17. ISOPTIN [Concomitant]

REACTIONS (14)
  - ATRIOVENTRICULAR BLOCK COMPLETE [None]
  - BRADYCARDIA [None]
  - CARDIAC ARREST [None]
  - CARDIAC FAILURE [None]
  - CEREBRAL ATROPHY [None]
  - COMA [None]
  - CORONARY ARTERY DISEASE [None]
  - CREPITATIONS [None]
  - DRUG INEFFECTIVE [None]
  - ELECTROMECHANICAL DISSOCIATION [None]
  - HYPERTONIA [None]
  - OBESITY [None]
  - RESPIRATORY ARREST [None]
  - VENTRICULAR FIBRILLATION [None]
